FAERS Safety Report 5921364-3 (Version None)
Quarter: 2008Q4

REPORT INFORMATION
  Report Type: 
  Country: None (occurrence: None)
  Receive Date: 20081014
  Receipt Date: 20081002
  Transmission Date: 20090506
  Serious: No
  Sender: FDA-Public Use
  Company Number: 2008-182751-NL

PATIENT
  Age: 24 Year
  Sex: Female

DRUGS (6)
  1. ZEMURON [Suspect]
     Indication: NEUROMUSCULAR BLOCKADE REVERSAL
     Dosage: 249 MG ONCE/125 MG ONCE, INTRAVENOUS BOLUS
     Route: 040
     Dates: start: 20080825, end: 20080825
  2. ZEMURON [Suspect]
     Indication: NEUROMUSCULAR BLOCKADE REVERSAL
     Dosage: 249 MG ONCE/125 MG ONCE, INTRAVENOUS BOLUS
     Route: 040
     Dates: start: 20080825, end: 20080825
  3. ROCURONIUM BROMIDE [Suspect]
     Indication: NEUROMUSCULAR BLOCKADE
     Dosage: 3.7 MG ONCE/7.5 MG ONCE, INTRAVENOUS BOLUS
     Route: 040
     Dates: start: 20080825, end: 20080825
  4. ROCURONIUM BROMIDE [Suspect]
     Indication: NEUROMUSCULAR BLOCKADE
     Dosage: 3.7 MG ONCE/7.5 MG ONCE, INTRAVENOUS BOLUS
     Route: 040
     Dates: start: 20080825, end: 20080825
  5. REMIFENTANIL [Concomitant]
  6. PROPOFOL [Concomitant]

REACTIONS (1)
  - PSYCHOTIC BEHAVIOUR [None]
